FAERS Safety Report 7452263-6 (Version None)
Quarter: 2011Q2

REPORT INFORMATION
  Report Type: 
  Country: None (occurrence: None)
  Receive Date: 20110425
  Receipt Date: 20110415
  Transmission Date: 20111010
  Serious: Yes (Other)
  Sender: FDA-Public Use
  Company Number: 2011SP012557

PATIENT
  Age: 59 Year
  Sex: Female

DRUGS (7)
  1. MIRTAZAPINE [Suspect]
     Indication: SEDATION
     Dosage: 15 MG;QD;PO
     Route: 048
     Dates: start: 20110228, end: 20110302
  2. MIRTAZAPINE [Suspect]
     Indication: INSOMNIA
     Dosage: 15 MG;QD;PO
     Route: 048
     Dates: start: 20110228, end: 20110302
  3. MIRTAZAPINE [Suspect]
     Indication: DEPRESSION
     Dosage: 15 MG;QD;PO
     Route: 048
     Dates: start: 20110228, end: 20110302
  4. ALPRAZOLAM [Concomitant]
  5. ESTRADIOL [Concomitant]
  6. ETIZOLAM [Concomitant]
  7. FLUVOXAMINE MALEATE [Concomitant]

REACTIONS (12)
  - ALTERED STATE OF CONSCIOUSNESS [None]
  - DEPRESSED MOOD [None]
  - MEMORY IMPAIRMENT [None]
  - IRRITABILITY [None]
  - MANIA [None]
  - INSOMNIA [None]
  - JUDGEMENT IMPAIRED [None]
  - SPEECH DISORDER [None]
  - ANXIETY [None]
  - ADJUSTMENT DISORDER [None]
  - ACTIVATION SYNDROME [None]
  - ABNORMAL BEHAVIOUR [None]
